FAERS Safety Report 12453743 (Version 1)
Quarter: 2016Q2

REPORT INFORMATION
  Report Type: Spontaneous
  Country: US (occurrence: US)
  Receive Date: 20160609
  Receipt Date: 20160609
  Transmission Date: 20160815
  Serious: No
  Sender: FDA-Public Use
  Company Number: ALCN2016US004072

PATIENT
  Sex: Female

DRUGS (2)
  1. ZADITOR [Suspect]
     Active Substance: KETOTIFEN FUMARATE
     Indication: HYPERSENSITIVITY
     Dosage: UNK
     Route: 047
     Dates: start: 2015, end: 2015
  2. ZADITOR [Suspect]
     Active Substance: KETOTIFEN FUMARATE
     Indication: LACRIMATION INCREASED

REACTIONS (1)
  - Urticaria [Recovered/Resolved]

NARRATIVE: CASE EVENT DATE: 2015
